FAERS Safety Report 4289177-9 (Version None)
Quarter: 2004Q1

REPORT INFORMATION
  Report Type: 
  Country: None (occurrence: None)
  Receive Date: 20040115
  Receipt Date: 20030509
  Transmission Date: 20041129
  Serious: Yes (Other)
  Sender: FDA-Public Use
  Company Number: 105589

PATIENT
  Age: 71 Year
  Sex: Female

DRUGS (1)
  1. ACTIVASE [Suspect]
     Dosage: 100 MG, SINGLE, INTRAVENOUS
     Route: 042
     Dates: start: 20021231

REACTIONS (1)
  - DRUG INEFFECTIVE [None]
